FAERS Safety Report 6297314-X (Version None)
Quarter: 2009Q3

REPORT INFORMATION
  Report Type: 
  Country: None (occurrence: None)
  Receive Date: 20090805
  Receipt Date: 20090727
  Transmission Date: 20100115
  Serious: Yes (Hospitalization)
  Sender: FDA-Public Use
  Company Number: KR-PFIZER INC-2009247831

PATIENT
  Age: 28 Year

DRUGS (4)
  1. SUNITINIB MALATE [Suspect]
     Indication: GASTRIC CANCER
     Dosage: 25 MG, 1X/DAY
     Route: 048
     Dates: start: 20090703
  2. DOCETAXEL [Suspect]
     Indication: GASTRIC CANCER
     Dosage: 60 MG,  EVERY 3 WEEKS;
     Route: 042
     Dates: start: 20090703
  3. URSODEOXYCHOLIC ACID [Concomitant]
     Indication: PROPHYLAXIS
     Route: 048
     Dates: start: 20090723, end: 20090727
  4. SILYMARIN [Concomitant]
     Indication: PROPHYLAXIS
     Route: 048
     Dates: start: 20090723, end: 20090727

REACTIONS (2)
  - EPISTAXIS [None]
  - MENORRHAGIA [None]
